FAERS Safety Report 5367729-2 (Version None)
Quarter: 2007Q2

REPORT INFORMATION
  Report Type: 
  Country: None (occurrence: None)
  Receive Date: 20070622
  Receipt Date: 20070427
  Transmission Date: 20071010
  Serious: No
  Sender: FDA-Public Use
  Company Number: US-ASTRAZENECA-2007UW06919

PATIENT
  Age: 1 Year
  Sex: Male
  Weight: 12.1 kg

DRUGS (3)
  1. PULMICORT RESPULES [Suspect]
     Indication: ASTHMA PROPHYLAXIS
     Route: 055
     Dates: start: 20070119
  2. ENTENDRYL [Concomitant]
     Indication: HYPERSENSITIVITY
     Route: 048
     Dates: start: 20070112
  3. FLOVENT [Concomitant]

REACTIONS (2)
  - LIP BLISTER [None]
  - LIP SWELLING [None]
